FAERS Safety Report 4843657-3 (Version None)
Quarter: 2005Q4

REPORT INFORMATION
  Report Type: 
  Country: None (occurrence: None)
  Receive Date: 20051202
  Receipt Date: 20051121
  Transmission Date: 20060501
  Serious: Yes (Other)
  Sender: FDA-Public Use
  Company Number: JP-JNJFOC-20051101653

PATIENT
  Sex: Male

DRUGS (2)
  1. RISPERDAL [Suspect]
  2. LORAZEPAM [Suspect]

REACTIONS (3)
  - FEEDING DISORDER NEONATAL [None]
  - IRRITABILITY [None]
  - URINE OUTPUT DECREASED [None]
